FAERS Safety Report 9744104 (Version 2)
Quarter: 2013Q4

REPORT INFORMATION
  Report Type: Spontaneous
  Country: IT (occurrence: IT)
  Receive Date: 20131210
  Receipt Date: 20131218
  Transmission Date: 20140711
  Serious: Yes (Other)
  Sender: FDA-Public Use
  Company Number: IT-PERRIGO-13IT012402

PATIENT
  Age: 76 Year
  Sex: Male

DRUGS (4)
  1. IBUPROFEN 200 MG 604 [Suspect]
     Indication: ANALGESIC THERAPY
     Dosage: 400 MG, BID
     Route: 048
  2. WARFARIN [Concomitant]
     Indication: PRODUCT USED FOR UNKNOWN INDICATION
  3. ATORVASTATIN [Concomitant]
     Indication: PRODUCT USED FOR UNKNOWN INDICATION
     Route: 065
  4. BISOPROLOL [Concomitant]
     Indication: PRODUCT USED FOR UNKNOWN INDICATION
     Route: 065

REACTIONS (3)
  - Inappropriate antidiuretic hormone secretion [Recovered/Resolved]
  - Confusional state [Recovered/Resolved]
  - Irritability [Recovered/Resolved]
